FAERS Safety Report 19771063 (Version 1)
Quarter: 2021Q3

REPORT INFORMATION
  Report Type: Spontaneous
  Country: US (occurrence: US)
  Receive Date: 20210901
  Receipt Date: 20210901
  Transmission Date: 20211014
  Serious: Yes (Other)
  Sender: FDA-Public Use
  Company Number: US-ASTRAZENECA-2021A697083

PATIENT
  Age: 19104 Day
  Sex: Female
  Weight: 55.8 kg

DRUGS (1)
  1. BYETTA [Suspect]
     Active Substance: EXENATIDE
     Dosage: UNKNOWN
     Route: 065

REACTIONS (4)
  - Visual impairment [Unknown]
  - Product label confusion [Unknown]
  - Cardiac failure congestive [Unknown]
  - Device breakage [Unknown]

NARRATIVE: CASE EVENT DATE: 20210823
